FAERS Safety Report 7609534-X (Version None)
Quarter: 2011Q3

REPORT INFORMATION
  Report Type: 
  Country: None (occurrence: None)
  Receive Date: 20110714
  Receipt Date: 20110701
  Transmission Date: 20111222
  Serious: Yes (Death)
  Sender: FDA-Public Use
  Company Number: JP-UCBSA-036511

PATIENT
  Age: 51 Year
  Sex: Female

DRUGS (3)
  1. HYDANTOL [Suspect]
     Dosage: STARTED ON ??/???/1971 ;16DF (FREQUENCY UNKNOWN); DECREASED AND DISCONTINUED  ON 10/MAY/2011
     Route: 048
     Dates: start: 20110602, end: 20110610
  2. TEGRETOL [Suspect]
     Route: 048
     Dates: start: 19710101, end: 20110601
  3. KEPPRA [Suspect]
     Indication: PARTIAL SEIZURES
     Route: 048
     Dates: start: 20110511, end: 20110610

REACTIONS (1)
  - SUDDEN DEATH [None]
